FAERS Safety Report 9979462 (Version 2)
Quarter: 2014Q1

REPORT INFORMATION
  Report Type: Report from Study
  Country: US (occurrence: US)
  Receive Date: 20140306
  Receipt Date: 20140306
  Transmission Date: 20141002
  Serious: No
  Sender: FDA-Public Use
  Company Number: US-ABBVIE-13P-163-1160428-00

PATIENT
  Age: 34 Year
  Sex: Female

DRUGS (6)
  1. HUMIRA [Suspect]
     Indication: CROHN^S DISEASE
     Route: 058
     Dates: start: 20131008, end: 20131008
  2. HUMIRA [Suspect]
     Route: 058
     Dates: start: 20131028, end: 20131028
  3. HUMIRA [Suspect]
     Dates: start: 20131111
  4. LEXAPRO [Concomitant]
     Indication: DEPRESSION
  5. NEXIUM [Concomitant]
     Indication: GASTROOESOPHAGEAL REFLUX DISEASE
  6. ALLEGRA [Concomitant]
     Indication: SEASONAL ALLERGY

REACTIONS (7)
  - Vitamin D decreased [Not Recovered/Not Resolved]
  - Respiratory tract congestion [Recovered/Resolved]
  - Productive cough [Not Recovered/Not Resolved]
  - Paranasal sinus hypersecretion [Not Recovered/Not Resolved]
  - Nasopharyngitis [Recovered/Resolved]
  - Injection site pain [Unknown]
  - Ear infection [Recovering/Resolving]
